FAERS Safety Report 23130118 (Version 2)
Quarter: 2023Q4

REPORT INFORMATION
  Report Type: Report from Study
  Country: CA (occurrence: CA)
  Receive Date: 20231031
  Receipt Date: 20231129
  Transmission Date: 20240109
  Serious: Yes (Other)
  Sender: FDA-Public Use
  Company Number: CA-MYLANLABS-2023M1026637

PATIENT
  Age: 40 Year
  Sex: Female
  Weight: 90 kg

DRUGS (1)
  1. OGIVRI [Suspect]
     Active Substance: TRASTUZUMAB-DKST
     Indication: Breast cancer metastatic
     Dosage: 516 MILLIGRAM, Q3W EVERY 3 WEEKS
     Route: 042
     Dates: start: 20220428

REACTIONS (5)
  - Breast cancer [Not Recovered/Not Resolved]
  - Neoplasm [Recovered/Resolved]
  - Weight decreased [Unknown]
  - Anaemia [Not Recovered/Not Resolved]
  - Off label use [Unknown]

NARRATIVE: CASE EVENT DATE: 20230309
